FAERS Safety Report 7092149-2 (Version None)
Quarter: 2010Q4

REPORT INFORMATION
  Report Type: 
  Country: None (occurrence: None)
  Receive Date: 20101109
  Receipt Date: 20101101
  Transmission Date: 20110411
  Serious: Yes (Other)
  Sender: FDA-Public Use
  Company Number: US-TEVA-253507USA

PATIENT
  Sex: Female

DRUGS (4)
  1. FLECAINIDE ACETATE TABLET 50MG,100MG,150MG [Suspect]
     Indication: ATRIAL FIBRILLATION
     Dates: start: 20090101
  2. TRAMADOL HCL [Concomitant]
  3. CEFDINIR [Concomitant]
  4. WARFARIN SODIUM [Concomitant]

REACTIONS (4)
  - EMBOLISM ARTERIAL [None]
  - HEADACHE [None]
  - LETHARGY [None]
  - VISUAL IMPAIRMENT [None]
